FAERS Safety Report 7982069-0 (Version None)
Quarter: 2011Q4

REPORT INFORMATION
  Report Type: 
  Country: None (occurrence: None)
  Receive Date: 20111214
  Receipt Date: 20111214
  Transmission Date: 20120403
  Serious: Yes (Hospitalization)
  Sender: FDA-Public Use
  Company Number: None

PATIENT
  Sex: Male
  Weight: 84.8 kg

DRUGS (19)
  1. ALPHAGAN P [Concomitant]
  2. WARFARIN SODIUM [Concomitant]
  3. SPIRONOLACTONE [Concomitant]
  4. NAMENDA [Concomitant]
  5. M.V.I. [Concomitant]
  6. LANTUS [Concomitant]
  7. SEREVANT [Concomitant]
  8. PREDNISONE TAB [Concomitant]
  9. TRELSTAR [Concomitant]
  10. AZO [Concomitant]
  11. SPIRIVA [Concomitant]
  12. CA [Concomitant]
  13. TORISEL [Suspect]
     Indication: PROSTATE CANCER
     Dosage: 25 MG Q WEEK IV
     Route: 042
     Dates: start: 20111201, end: 20111201
  14. TRAVATAN [Concomitant]
  15. ALBUTEROL [Concomitant]
  16. METOPROLOL TARTRATE [Concomitant]
  17. HYDROCODONE BITARTRATE [Concomitant]
  18. HUMALOG [Concomitant]
  19. PULMICORT [Concomitant]

REACTIONS (4)
  - DECREASED APPETITE [None]
  - COUGH [None]
  - DYSPNOEA [None]
  - PNEUMONIA [None]
